FAERS Safety Report 24007160 (Version 1)
Quarter: 2024Q2

REPORT INFORMATION
  Report Type: Spontaneous
  Country: US (occurrence: US)
  Receive Date: 20240624
  Receipt Date: 20240624
  Transmission Date: 20240716
  Serious: No
  Sender: FDA-Public Use
  Company Number: US-AMGEN-USASP2024120738

PATIENT
  Sex: Female

DRUGS (4)
  1. ENBREL [Suspect]
     Active Substance: BENZYL ALCOHOL\ETANERCEPT
     Indication: Product used for unknown indication
     Dosage: UNK
     Route: 065
  2. OTEZLA [Suspect]
     Active Substance: APREMILAST
     Indication: Product used for unknown indication
     Dosage: UNK
     Route: 065
  3. HUMIRA [Concomitant]
     Active Substance: ADALIMUMAB
     Dosage: UNK
     Route: 065
  4. SKYRIZI [Concomitant]
     Active Substance: RISANKIZUMAB-RZAA
     Dosage: UNK
     Route: 065

REACTIONS (2)
  - Treatment failure [Unknown]
  - Therapy interrupted [Unknown]

NARRATIVE: CASE EVENT DATE: 20210101
